FAERS Safety Report 15419438 (Version 1)
Quarter: 2018Q4

REPORT INFORMATION
  Report Type: Spontaneous
  Country: US (occurrence: US)
  Receive Date: 20180924
  Receipt Date: 20180924
  Transmission Date: 20190204
  Serious: No
  Sender: FDA-Public Use
  Company Number: US-SA-2018SA253106

PATIENT
  Sex: Female

DRUGS (2)
  1. GOLD BOND ULTIMATE FIRMING NECK AND CHEST CREAM [Suspect]
     Active Substance: PETROLATUM
  2. GOLD BOND ORIGINAL STRENGTH POWDER [Concomitant]
     Active Substance: MENTHOL\ZINC OXIDE

REACTIONS (2)
  - Expired product administered [Unknown]
  - Drug ineffective [Unknown]
